FAERS Safety Report 10263298 (Version 2)
Quarter: 2014Q2

REPORT INFORMATION
  Report Type: Report from Study
  Country: US (occurrence: US)
  Receive Date: 20140626
  Receipt Date: 20140626
  Transmission Date: 20141212
  Serious: Yes (Other)
  Sender: FDA-Public Use
  Company Number: US-MYLANLABS-2012S1019091

PATIENT
  Age: 19 Year
  Sex: Male
  Weight: 69.85 kg

DRUGS (6)
  1. CLOZAPINE TABLETS [Suspect]
     Indication: PSYCHOTIC DISORDER
     Dates: start: 20120315, end: 20130906
  2. CLOZAPINE TABLETS [Suspect]
     Indication: HALLUCINATION
     Dates: start: 20120315, end: 20130906
  3. CLOZAPINE TABLETS [Suspect]
     Indication: DELUSION
     Dates: start: 20120315, end: 20130906
  4. SEROQUEL [Concomitant]
     Dosage: 800 MG, HS AND 200MG QAM
     Route: 048
  5. SERTRALINE [Concomitant]
  6. DOCUSATE SODIUM [Concomitant]
     Route: 048

REACTIONS (2)
  - Granulocytopenia [Recovered/Resolved]
  - White blood cell count decreased [Recovered/Resolved]
